FAERS Safety Report 7893053-X (Version None)
Quarter: 2011Q4

REPORT INFORMATION
  Report Type: 
  Country: None (occurrence: None)
  Receive Date: 20111104
  Receipt Date: 20110907
  Transmission Date: 20120403
  Serious: No
  Sender: FDA-Public Use
  Company Number: US-GLAXOSMITHKLINE-A0943733A

PATIENT
  Age: 79 Year
  Sex: Male

DRUGS (2)
  1. HORIZANT [Suspect]
     Indication: RESTLESS LEGS SYNDROME
     Dosage: 600MG AT NIGHT
     Route: 048
     Dates: start: 20110905
  2. NO CONCURRENT MEDICATION [Concomitant]

REACTIONS (4)
  - INSOMNIA [None]
  - BALANCE DISORDER [None]
  - DRUG INEFFECTIVE [None]
  - DIZZINESS [None]
